FAERS Safety Report 7692160-4 (Version None)
Quarter: 2011Q3

REPORT INFORMATION
  Report Type: 
  Country: None (occurrence: None)
  Receive Date: 20110818
  Receipt Date: 20110805
  Transmission Date: 20111222
  Serious: Yes (Hospitalization, Other)
  Sender: FDA-Public Use
  Company Number: PHHY2011JP69056

PATIENT
  Age: 68 Year
  Sex: Male
  Weight: 51.2 kg

DRUGS (11)
  1. PREDNISOLONE [Concomitant]
     Indication: PEMPHIGUS
     Dosage: 50 MG,
     Route: 048
  2. SANDOGLOBULIN [Concomitant]
     Indication: PEMPHIGUS
     Dosage: 5 G, THREE DAYS
     Dates: start: 20080214
  3. IMURAN [Concomitant]
     Indication: PEMPHIGUS
     Dosage: UNK UKN, UNK
     Route: 048
     Dates: start: 20080101, end: 20080310
  4. BASEN [Concomitant]
     Indication: DIABETES MELLITUS
     Dosage: 0.6 MG, UNK
     Route: 048
     Dates: start: 20080729, end: 20080801
  5. NEORAL [Suspect]
     Indication: PEMPHIGUS
     Dosage: 150 MG, UNK
     Route: 048
     Dates: start: 20080101
  6. NATEGLINIDE [Concomitant]
     Indication: DIABETES MELLITUS
     Dosage: UNK UKN, UNK
     Route: 048
     Dates: start: 20080801
  7. METHYLPREDNISOLONE [Concomitant]
     Indication: PEMPHIGUS
     Dosage: 1000 MG, UNK
     Route: 048
  8. BETAMETHASONE [Concomitant]
     Dosage: 2 MG, QD
  9. NATEGLINIDE [Concomitant]
  10. BETAMETHASONE [Concomitant]
     Indication: PEMPHIGUS
     Dosage: 2 MG, UNK
     Route: 048
  11. BETAMETHASONE [Concomitant]
     Dosage: 4 MG, UNK
     Route: 048

REACTIONS (12)
  - PEMPHIGUS [None]
  - CYTOMEGALOVIRUS INFECTION [None]
  - GASTROINTESTINAL DISORDER [None]
  - PNEUMATOSIS INTESTINALIS [None]
  - PNEUMOCYSTIS JIROVECI PNEUMONIA [None]
  - CONDITION AGGRAVATED [None]
  - SKIN EROSION [None]
  - ORAL MUCOSA EROSION [None]
  - DYSPNOEA [None]
  - DIABETES MELLITUS [None]
  - PYREXIA [None]
  - OCCULT BLOOD [None]
